FAERS Safety Report 25066687 (Version 1)
Quarter: 2025Q1

REPORT INFORMATION
  Report Type: Spontaneous
  Country: PR (occurrence: PR)
  Receive Date: 20250312
  Receipt Date: 20250312
  Transmission Date: 20250408
  Serious: No
  Sender: ABBVIE
  Company Number: PR-ABBVIE-6165614

PATIENT
  Age: 62 Year
  Sex: Female

DRUGS (2)
  1. RINVOQ [Suspect]
     Active Substance: UPADACITINIB
     Indication: Rheumatoid arthritis
     Route: 048
  2. RINVOQ [Suspect]
     Active Substance: UPADACITINIB
     Indication: Rheumatoid arthritis
     Route: 048

REACTIONS (6)
  - Rhinorrhoea [Recovered/Resolved]
  - Asthenia [Recovered/Resolved]
  - Influenza like illness [Recovered/Resolved]
  - Rheumatoid arthritis [Unknown]
  - Dizziness [Recovered/Resolved]
  - Pain [Recovered/Resolved]
